FAERS Safety Report 9242746 (Version 2)
Quarter: 2013Q2

REPORT INFORMATION
  Report Type: Spontaneous
  Country: TR (occurrence: TR)
  Receive Date: 20130419
  Receipt Date: 20130424
  Transmission Date: 20140414
  Serious: Yes (Hospitalization)
  Sender: FDA-Public Use
  Company Number: PHHY2013TR036685

PATIENT
  Age: 25 Year
  Sex: Female
  Weight: 56.5 kg

DRUGS (2)
  1. SPIRONOLACTONE [Suspect]
     Indication: HIRSUTISM
     Dosage: 200 MG, UNK
  2. SPIRONOLACTONE [Suspect]
     Dosage: 2 DF
     Route: 048

REACTIONS (9)
  - Pneumomediastinum [Recovered/Resolved]
  - Cough [Recovered/Resolved]
  - Chest pain [Recovered/Resolved]
  - Breath sounds abnormal [Recovered/Resolved]
  - Dyspnoea [Recovered/Resolved]
  - Emphysema [Recovered/Resolved]
  - Dysphagia [Recovered/Resolved]
  - Retching [Recovered/Resolved]
  - Pyrexia [Recovered/Resolved]
